FAERS Safety Report 8516442-9 (Version None)
Quarter: 2012Q3

REPORT INFORMATION
  Report Type: 
  Country: None (occurrence: None)
  Receive Date: 20120718
  Receipt Date: 20120709
  Transmission Date: 20120928
  Serious: No
  Sender: FDA-Public Use
  Company Number: US-009507513-1207USA004599

PATIENT

DRUGS (1)
  1. JANUMET XR [Suspect]
     Dosage: UNK

REACTIONS (1)
  - ADVERSE EVENT [None]
